FAERS Safety Report 9542411 (Version 1)
Quarter: 2013Q3

REPORT INFORMATION
  Report Type: Spontaneous
  Country: HU (occurrence: HU)
  Receive Date: 20130923
  Receipt Date: 20130923
  Transmission Date: 20140515
  Serious: Yes (Other)
  Sender: FDA-Public Use
  Company Number: HU-PFIZER INC-2013264665

PATIENT
  Sex: Female

DRUGS (3)
  1. GABAPENTIN [Suspect]
     Indication: STIFF PERSON SYNDROME
  2. DIAZEPAM [Suspect]
     Indication: STIFF PERSON SYNDROME
  3. BACLOFEN [Suspect]
     Indication: STIFF PERSON SYNDROME

REACTIONS (6)
  - Off label use [Unknown]
  - Stiff person syndrome [Unknown]
  - Suicidal ideation [Unknown]
  - Psychotic disorder [Unknown]
  - General physical health deterioration [Unknown]
  - Anti-GAD antibody positive [Unknown]
